FAERS Safety Report 9890458 (Version 1)
Quarter: 2014Q1

REPORT INFORMATION
  Report Type: Other
  Country: GB (occurrence: GB)
  Receive Date: 20140212
  Receipt Date: 20140212
  Transmission Date: 20141002
  Serious: Yes (Hospitalization, Disabling)
  Sender: FDA-Public Use
  Company Number: GB-SUN PHARMACEUTICAL INDUSTRIES LTD-2014SUN00235

PATIENT
  Age: 82 Year
  Sex: Male
  Weight: 57.15 kg

DRUGS (14)
  1. BACLOFEN [Suspect]
     Indication: PRODUCT USED FOR UNKNOWN INDICATION
     Dosage: UNK
     Route: 065
     Dates: start: 20140116
  2. AMOXICILLIN [Concomitant]
     Dosage: UNK
     Dates: start: 20131206, end: 20131209
  3. ASPIRIN [Concomitant]
     Dosage: UNK
     Dates: start: 20120104
  4. ATENOLOL [Concomitant]
     Dosage: UNK
     Dates: start: 20120104
  5. CLONAZEPAM [Concomitant]
     Dosage: UNK
     Dates: start: 20130916
  6. DOMPERIDONE [Concomitant]
     Dosage: UNK
     Dates: start: 20130926, end: 20131129
  7. FOLIC ACID [Concomitant]
     Dosage: UNK
     Dates: start: 20131010
  8. HYOSCINE HYDROBROMIDE [Concomitant]
     Dosage: UNK
     Dates: start: 20131022
  9. MADOPAR [Concomitant]
     Dosage: UNK
     Dates: start: 20120104
  10. PRAMIPEXOLE [Concomitant]
     Dosage: UNK
     Dates: start: 20120104
  11. PRAVASTATIN [Concomitant]
     Dosage: UNK
     Dates: start: 20120104
  12. QUININE [Concomitant]
     Dosage: UNK
     Dates: start: 20130924, end: 20131213
  13. RAMIPRIL [Concomitant]
     Dosage: UNK
     Dates: start: 20120104
  14. STALEVO [Concomitant]

REACTIONS (1)
  - Dyskinesia [Unknown]
